FAERS Safety Report 5390555-5 (Version None)
Quarter: 2007Q3

REPORT INFORMATION
  Report Type: 
  Country: None (occurrence: None)
  Receive Date: 20070718
  Receipt Date: 20060713
  Transmission Date: 20080115
  Serious: No
  Sender: FDA-Public Use
  Company Number: US-KINGPHARMUSA00001-K200600924

PATIENT

DRUGS (5)
  1. LEVOXYL [Suspect]
     Dosage: 75 MCG, QD
     Route: 048
     Dates: start: 19800101, end: 20060701
  2. SYNTHROID [Concomitant]
  3. ACTIVELLA [Concomitant]
     Indication: HORMONE REPLACEMENT THERAPY
  4. ^ZOLPLEX^ [Concomitant]
     Indication: VITAMIN SUPPLEMENTATION
  5. ZETIA [Concomitant]
     Indication: BLOOD CHOLESTEROL INCREASED

REACTIONS (1)
  - WEIGHT INCREASED [None]
